FAERS Safety Report 20979935 (Version 2)
Quarter: 2022Q3

REPORT INFORMATION
  Report Type: Spontaneous
  Country: CN (occurrence: CN)
  Receive Date: 20220620
  Receipt Date: 20220701
  Transmission Date: 20221026
  Serious: Yes (Hospitalization, Other)
  Sender: FDA-Public Use
  Company Number: CN-009507513-2206CHN004975

PATIENT
  Age: 67 Year
  Sex: Female

DRUGS (18)
  1. PEMBROLIZUMAB [Suspect]
     Active Substance: PEMBROLIZUMAB
     Indication: Lung adenocarcinoma stage IV
     Dosage: 200 MG, EVERY 21 DAYS (Q3W)
     Route: 041
     Dates: start: 201911, end: 201911
  2. PEMBROLIZUMAB [Suspect]
     Active Substance: PEMBROLIZUMAB
     Dosage: 200 MG, EVERY 21 DAYS (Q3W)
     Route: 041
     Dates: start: 20191207, end: 20191207
  3. PEMBROLIZUMAB [Suspect]
     Active Substance: PEMBROLIZUMAB
     Dosage: 200 MG, EVERY 21 DAYS (Q3W)
     Route: 041
     Dates: start: 20191228, end: 20191228
  4. PEMBROLIZUMAB [Suspect]
     Active Substance: PEMBROLIZUMAB
     Dosage: 200 MG, EVERY 21 DAYS (Q3W)
     Route: 041
     Dates: start: 20200118, end: 20200118
  5. PEMBROLIZUMAB [Suspect]
     Active Substance: PEMBROLIZUMAB
     Dosage: 200 MG, EVERY 21 DAYS (Q3W)
     Route: 041
     Dates: start: 20200208, end: 20200208
  6. PEMBROLIZUMAB [Suspect]
     Active Substance: PEMBROLIZUMAB
     Dosage: 200 MG, EVERY 21 DAYS (Q3W)
     Route: 041
     Dates: start: 20200311, end: 20200311
  7. PEMETREXED [Suspect]
     Active Substance: PEMETREXED
     Indication: Lung adenocarcinoma stage IV
     Dosage: 0.8 G
     Dates: start: 201911, end: 201911
  8. PEMETREXED [Suspect]
     Active Substance: PEMETREXED
     Dosage: 0.8 G
     Dates: start: 20191207, end: 20191207
  9. PEMETREXED [Suspect]
     Active Substance: PEMETREXED
     Dosage: 0.8 G
     Dates: start: 20191228, end: 20191228
  10. PEMETREXED [Suspect]
     Active Substance: PEMETREXED
     Dosage: 0.8 G
     Dates: start: 20200118, end: 20200118
  11. PEMETREXED [Suspect]
     Active Substance: PEMETREXED
     Dosage: 0.8 G
     Dates: start: 20200208, end: 20200208
  12. PEMETREXED [Suspect]
     Active Substance: PEMETREXED
     Dosage: UNK
     Dates: start: 20210311, end: 20210311
  13. CARBOPLATIN [Suspect]
     Active Substance: CARBOPLATIN
     Indication: Lung adenocarcinoma stage IV
     Dosage: 0.4 G
     Dates: start: 201911, end: 201911
  14. CARBOPLATIN [Suspect]
     Active Substance: CARBOPLATIN
     Dosage: 0.4 G
     Dates: start: 20191207, end: 20191207
  15. CARBOPLATIN [Suspect]
     Active Substance: CARBOPLATIN
     Dosage: 0.4 G
     Dates: start: 20191228, end: 20191228
  16. CARBOPLATIN [Suspect]
     Active Substance: CARBOPLATIN
     Dosage: 0.4 G
     Dates: start: 20200118, end: 20200118
  17. CARBOPLATIN [Suspect]
     Active Substance: CARBOPLATIN
     Dosage: 0.4 G
     Dates: start: 20200208, end: 20200208
  18. CARBOPLATIN [Suspect]
     Active Substance: CARBOPLATIN
     Dosage: UNK
     Dates: start: 20210311, end: 20210311

REACTIONS (8)
  - Myelosuppression [Recovering/Resolving]
  - Septic shock [Unknown]
  - Bronchostenosis [Recovering/Resolving]
  - Type 2 diabetes mellitus [Unknown]
  - Malignant neoplasm progression [Unknown]
  - Drug ineffective [Unknown]
  - Asthma [Unknown]
  - Hypertension [Unknown]

NARRATIVE: CASE EVENT DATE: 20200201
